FAERS Safety Report 13085771 (Version 1)
Quarter: 2017Q1

REPORT INFORMATION
  Report Type: Spontaneous
  Country: DE (occurrence: DE)
  Receive Date: 20170104
  Receipt Date: 20170104
  Transmission Date: 20170428
  Serious: Yes (Other)
  Sender: FDA-Public Use
  Company Number: DE-TEVA-694673GER

PATIENT
  Sex: Female
  Weight: 65 kg

DRUGS (4)
  1. NOVALGIN [Concomitant]
     Active Substance: METAMIZOLE SODIUM
     Indication: DIVERTICULITIS
     Dosage: 80 GTT DAILY;
     Route: 048
     Dates: start: 20160401, end: 20160411
  2. CIPROFLOX-CT 250 MG FILMTABLETTEN [Suspect]
     Active Substance: CIPROFLOXACIN
     Indication: DIVERTICULITIS
     Dosage: 1000 MILLIGRAM DAILY; DAILY DOSE: 2X500MG
     Route: 048
     Dates: start: 20160401, end: 20160411
  3. METRONIDAZOL 400 CT TABLETTEN [Concomitant]
     Active Substance: METRONIDAZOLE
     Indication: DIVERTICULITIS
     Dosage: 800 MILLIGRAM DAILY; DAILY DOSE: 2X400MG
     Route: 048
     Dates: start: 20160401, end: 20160411
  4. SALOFALK 500 TABLETTEN [Concomitant]
     Dosage: 1500 MILLIGRAM DAILY;
     Route: 048
     Dates: start: 20160401, end: 20160411

REACTIONS (2)
  - Pain in extremity [Not Recovered/Not Resolved]
  - Immobile [Not Recovered/Not Resolved]

NARRATIVE: CASE EVENT DATE: 2016
